FAERS Safety Report 12644089 (Version 1)
Quarter: 2016Q3

REPORT INFORMATION
  Report Type: Spontaneous
  Country: US (occurrence: US)
  Receive Date: 20160811
  Receipt Date: 20160811
  Transmission Date: 20161109
  Serious: No
  Sender: FDA-Public Use
  Company Number: US-GLAXOSMITHKLINE-US2016115856

PATIENT
  Age: 34 Year
  Sex: Female

DRUGS (2)
  1. PREVACID 24 HR [Suspect]
     Active Substance: LANSOPRAZOLE
     Indication: GASTROOESOPHAGEAL REFLUX DISEASE
  2. PREVACID 24 HR [Suspect]
     Active Substance: LANSOPRAZOLE
     Indication: REFLUX LARYNGITIS
     Dosage: UNK
     Route: 048

REACTIONS (4)
  - Wrong technique in product usage process [Unknown]
  - Dry mouth [Not Recovered/Not Resolved]
  - Liver disorder [Not Recovered/Not Resolved]
  - Off label use [Unknown]
